FAERS Safety Report 6212036-9 (Version None)
Quarter: 2009Q2

REPORT INFORMATION
  Report Type: 
  Country: None (occurrence: None)
  Receive Date: 20090529
  Receipt Date: 20090521
  Transmission Date: 20091009
  Serious: Yes (Other)
  Sender: FDA-Public Use
  Company Number: 278880

PATIENT
  Age: 58 Year
  Sex: Female

DRUGS (14)
  1. CARBOPLATIN [Suspect]
     Indication: ENDOMETRIAL CANCER STAGE III
     Dosage: PER CYCLE
  2. PACLITAXEL [Suspect]
     Indication: ENDOMETRIAL CANCER STAGE III
     Dosage: PER CYCLE
  3. WARFARIN SODIUM [Suspect]
     Indication: ANTICOAGULANT THERAPY
  4. AMLODIPINE BESYLATE [Concomitant]
  5. LEVOTHYROXINE SODIUM [Concomitant]
  6. (EPOETIN ALFA) [Concomitant]
  7. PAROXETINE HYDROCHLORIDE [Concomitant]
  8. FUROSEMIDE [Concomitant]
  9. (OXYCODONE) [Concomitant]
  10. ACETAMINOPHEN [Concomitant]
  11. (SIMETHICONE) [Concomitant]
  12. SENNA-MINT WAF [Concomitant]
  13. LORAZEPAM [Concomitant]
  14. MUPIROCIN [Concomitant]

REACTIONS (2)
  - CALCIPHYLAXIS [None]
  - INTERNATIONAL NORMALISED RATIO INCREASED [None]
